FAERS Safety Report 23831207 (Version 4)
Quarter: 2024Q3

REPORT INFORMATION
  Report Type: Spontaneous
  Country: CA (occurrence: CA)
  Receive Date: 20240508
  Receipt Date: 20240701
  Transmission Date: 20241016
  Serious: Yes (Hospitalization, Other)
  Sender: PFIZER
  Company Number: CA-PFIZER INC-202400062561

PATIENT
  Age: 23 Year
  Sex: Female

DRUGS (2)
  1. RUXIENCE [Suspect]
     Active Substance: RITUXIMAB-PVVR
     Indication: Encephalitis
     Dosage: 1000 MG, SINGLE DOSE (USING 1000 MG Q14 DAYS 2 DOSES REGIMEN)
     Route: 042
     Dates: start: 202403, end: 202403
  2. PREDNISONE [Concomitant]
     Active Substance: PREDNISONE
     Indication: Premedication
     Dosage: 60 MG

REACTIONS (4)
  - Condition aggravated [Unknown]
  - Seizure [Unknown]
  - Dyspnoea [Unknown]
  - Off label use [Unknown]

NARRATIVE: CASE EVENT DATE: 20240101
